FAERS Safety Report 6015618-2 (Version None)
Quarter: 2008Q4

REPORT INFORMATION
  Report Type: 
  Country: None (occurrence: None)
  Receive Date: 20081222
  Receipt Date: 20081118
  Transmission Date: 20090506
  Serious: No
  Sender: FDA-Public Use
  Company Number: US-BAYER-200814452BCC

PATIENT
  Age: 75 Year
  Sex: Female
  Weight: 61 kg

DRUGS (2)
  1. ALEVE [Suspect]
     Indication: HEADACHE
     Dosage: TOTAL DAILY DOSE: 220 MG  UNIT DOSE: 220 MG
     Dates: start: 20071125
  2. ALLEREST [Concomitant]

REACTIONS (4)
  - HYPERSENSITIVITY [None]
  - LIP SWELLING [None]
  - NASAL OEDEMA [None]
  - OEDEMA MOUTH [None]
